FAERS Safety Report 4596553-3 (Version None)
Quarter: 2005Q1

REPORT INFORMATION
  Report Type: 
  Country: None (occurrence: None)
  Receive Date: 20050302
  Receipt Date: 20050131
  Transmission Date: 20050727
  Serious: Yes (Death, Life-Threatening, Hospitalization, Other)
  Sender: FDA-Public Use
  Company Number: PHRM2005FR00683

PATIENT
  Age: 74 Year
  Sex: Male

DRUGS (5)
  1. VISKEN [Suspect]
     Route: 048
  2. OMIX [Suspect]
     Route: 048
  3. AMAREL [Suspect]
     Route: 048
  4. VIOXX [Suspect]
     Route: 048
     Dates: start: 20021101
  5. METFORMIN HCL [Suspect]
     Route: 048

REACTIONS (12)
  - ARRHYTHMIA [None]
  - BRONCHOPNEUMONIA [None]
  - CARDIAC ARREST [None]
  - CEREBRAL DISORDER [None]
  - COMA [None]
  - GENERAL PHYSICAL HEALTH DETERIORATION [None]
  - LUNG DISORDER [None]
  - NEUROLOGICAL EXAMINATION ABNORMAL [None]
  - NOSOCOMIAL INFECTION [None]
  - PSEUDOMONAL SEPSIS [None]
  - PSEUDOMONAS INFECTION [None]
  - TRACHEOSTOMY [None]
